FAERS Safety Report 4962404-8 (Version None)
Quarter: 2006Q2

REPORT INFORMATION
  Report Type: 
  Country: None (occurrence: None)
  Receive Date: 20060403
  Receipt Date: 20060403
  Transmission Date: 20061013
  Serious: No
  Sender: FDA-Public Use
  Company Number: None

PATIENT
  Sex: Male
  Weight: 80.2867 kg

DRUGS (6)
  1. LISINOPRIL [Suspect]
     Indication: HYPERTENSION
     Dosage: 5 MG Q DAY PO
     Route: 048
     Dates: start: 20050228, end: 20050711
  2. ATENOLOL [Concomitant]
  3. CYANOCOBALAMIN [Concomitant]
  4. HYDROCHLOROTHIAZIDE [Concomitant]
  5. HYDROCODONE 5/ACETAMINOPHEN [Concomitant]
  6. INDOMETHACIN [Concomitant]

REACTIONS (1)
  - SWELLING FACE [None]
